FAERS Safety Report 20903233 (Version 1)
Quarter: 2022Q2

REPORT INFORMATION
  Report Type: Report from Study
  Country: US (occurrence: US)
  Receive Date: 20220601
  Receipt Date: 20220601
  Transmission Date: 20220720
  Serious: Yes (Life-Threatening, Other)
  Sender: FDA-Public Use
  Company Number: US-GILEAD-2022-0583698

PATIENT
  Age: 38 Year
  Sex: Male
  Weight: 111.5 kg

DRUGS (25)
  1. REMDESIVIR [Suspect]
     Active Substance: REMDESIVIR
     Indication: COVID-19
     Dosage: 100 MG, QD
     Route: 048
     Dates: start: 20210916, end: 20210919
  2. REMDESIVIR [Suspect]
     Active Substance: REMDESIVIR
     Dosage: 200 MG, ONCE (NON-STUDY DRUG)
     Route: 042
     Dates: start: 20210915, end: 20210915
  3. CYPROHEPTADINE [Suspect]
     Active Substance: CYPROHEPTADINE
     Indication: COVID-19
     Dosage: 8 MG, Q8H
     Route: 048
     Dates: start: 20210916, end: 20210926
  4. ACETAMINOPHEN [Concomitant]
     Active Substance: ACETAMINOPHEN
     Indication: Pain
     Dosage: 650 MG NG/OG TUBE
     Route: 050
     Dates: start: 20210915, end: 20211127
  5. CISATRACURIUM [Concomitant]
     Active Substance: CISATRACURIUM
     Indication: Respiratory tract infection
     Dosage: 20 MG
     Route: 041
     Dates: start: 20211019, end: 20211019
  6. CISATRACURIUM [Concomitant]
     Active Substance: CISATRACURIUM
     Dosage: 10 MG, Q1HR
     Route: 041
     Dates: start: 20210929, end: 20211019
  7. OXYGEN [Concomitant]
     Active Substance: OXYGEN
     Dosage: HIGH-FLOW NASAL CANNULA, PROGRESSING TO BILEVEL POSITIVE AIRWAY PRESSURE
     Route: 045
     Dates: start: 20210915
  8. BARICITINIB [Concomitant]
     Active Substance: BARICITINIB
     Dosage: 4 MG, QD
     Route: 048
     Dates: start: 20210916, end: 20210929
  9. BENZONATATE [Concomitant]
     Active Substance: BENZONATATE
     Dosage: 100 MG, TID PRN
     Dates: start: 20210924, end: 20210930
  10. ACETYLCYSTEINE [Concomitant]
     Active Substance: ACETYLCYSTEINE
     Dosage: 4 ML, Q4HR
     Route: 055
     Dates: start: 20211108, end: 20211130
  11. CEFAZOLIN [Concomitant]
     Active Substance: CEFAZOLIN
     Dosage: 2 G, Q8H
     Route: 042
     Dates: start: 20211101, end: 20211102
  12. CEFAZOLIN [Concomitant]
     Active Substance: CEFAZOLIN
     Dosage: 2 G, Q8H
     Route: 042
     Dates: start: 20211020, end: 20211026
  13. CEFTRIAXONE [Concomitant]
     Active Substance: CEFTRIAXONE
     Dosage: 2 G, QD OVER 30 MIN
     Route: 042
     Dates: start: 20211102, end: 20211116
  14. CEFTRIAXONE [Concomitant]
     Active Substance: CEFTRIAXONE
     Dosage: 2 G, QD OVER 30 MIN
     Route: 042
     Dates: start: 20211003, end: 20211007
  15. DEXAMETHASONE [Concomitant]
     Active Substance: DEXAMETHASONE
     Dosage: 6 MG, QD PO OR IV
     Dates: start: 20210915, end: 20210917
  16. ENOXAPARIN [Concomitant]
     Active Substance: ENOXAPARIN
     Dosage: 30 MG, BID
     Route: 058
     Dates: start: 20210915, end: 20210925
  17. ENOXAPARIN [Concomitant]
     Active Substance: ENOXAPARIN
     Dosage: 30 MG, BID
     Route: 058
     Dates: start: 20211027, end: 20211130
  18. EPINEPHRINE [Concomitant]
     Active Substance: EPINEPHRINE
     Dosage: 1 MG, ONCE
     Route: 042
     Dates: start: 20211016, end: 20211016
  19. MIDAZOLAM [Concomitant]
     Active Substance: MIDAZOLAM
     Dosage: 1 MG Q5MIN
     Route: 042
     Dates: start: 20210929, end: 20211024
  20. NOREPINEPHRINE [Concomitant]
     Active Substance: NOREPINEPHRINE
     Dosage: 2.5 UG, Q1MINUTE CONTINUOUS DRIP AT 4.69 ML/H
     Route: 041
     Dates: start: 20210929, end: 20211120
  21. PIPERACILLIN [Concomitant]
     Active Substance: PIPERACILLIN
     Dosage: 3.375 G, Q8H AT 25 ML/H
     Route: 042
     Dates: start: 20211016, end: 20211017
  22. PIPERACILLIN [Concomitant]
     Active Substance: PIPERACILLIN
     Dosage: 3.375 G, Q8H AT 25 ML/H
     Route: 042
     Dates: start: 20211124, end: 20211130
  23. VANCOMYCIN [Concomitant]
     Active Substance: VANCOMYCIN
     Dosage: 1 G, Q6H AT 250 ML/H
     Route: 042
     Dates: start: 20210928, end: 20210929
  24. VANCOMYCIN [Concomitant]
     Active Substance: VANCOMYCIN
     Dosage: 1 G, Q6H AT 250 ML/H
     Route: 042
     Dates: start: 20211017, end: 20211018
  25. VECURONIUM [Concomitant]
     Active Substance: VECURONIUM BROMIDE
     Dosage: 10 MG, Q1HR CONTINUOUS DRIP AT 6 ML/H
     Route: 041
     Dates: start: 20210929, end: 20211108

REACTIONS (1)
  - Cardiac arrest [Recovered/Resolved]

NARRATIVE: CASE EVENT DATE: 20211019
